FAERS Safety Report 10486000 (Version 2)
Quarter: 2014Q4

REPORT INFORMATION
  Report Type: Spontaneous
  Country: US (occurrence: None)
  Receive Date: 20140929
  Receipt Date: 20141006
  Transmission Date: 20150528
  Serious: Yes (Other)
  Sender: FDA-Public Use
  Company Number: 140372

PATIENT
  Age: 28 Year
  Sex: Male
  Weight: 106.6 kg

DRUGS (3)
  1. OMEGA 3-FATTY [Concomitant]
  2. SUPREP BOWEL PREP [Suspect]
     Active Substance: MAGNESIUM SULFATE\POTASSIUM SULFATE\SODIUM SULFATE
     Indication: COLONOSCOPY
     Dosage: 1.5 X 6OZ. BOTTLE 1X PO
     Route: 048
     Dates: start: 20140921, end: 20140921
  3. COLON HEALTH SUPPLEMENT [Concomitant]

REACTIONS (7)
  - Abdominal distension [None]
  - Vomiting [None]
  - Abdominal pain [None]
  - Abdominal pain upper [None]
  - Abdominal tenderness [None]
  - Haematochezia [None]
  - Gastrointestinal pain [None]

NARRATIVE: CASE EVENT DATE: 20140921
